FAERS Safety Report 25527014 (Version 2)
Quarter: 2025Q3

REPORT INFORMATION
  Report Type: Report from Study
  Country: CA (occurrence: CA)
  Receive Date: 20250708
  Receipt Date: 20250902
  Transmission Date: 20251021
  Serious: Yes (Hospitalization)
  Sender: ABBVIE
  Company Number: CA-LUNDBECK-DKLU4016277

PATIENT
  Age: 50 Year
  Sex: Female

DRUGS (16)
  1. ESCITALOPRAM [Suspect]
     Active Substance: ESCITALOPRAM OXALATE
     Indication: Product used for unknown indication
     Route: 048
  2. LACOSAMIDE [Suspect]
     Active Substance: LACOSAMIDE
     Indication: Product used for unknown indication
     Route: 065
  3. APTIOM [Concomitant]
     Active Substance: ESLICARBAZEPINE ACETATE
     Indication: Product used for unknown indication
  4. CHOLECALCIFEROL [Concomitant]
     Active Substance: CHOLECALCIFEROL
     Indication: Product used for unknown indication
  5. GABAPENTIN [Concomitant]
     Active Substance: GABAPENTIN
     Indication: Product used for unknown indication
  6. XCOPRI [Suspect]
     Active Substance: CENOBAMATE
     Indication: Simple partial seizures
     Dosage: 200 MILLIGRAM
     Route: 048
  7. XCOPRI [Suspect]
     Active Substance: CENOBAMATE
     Indication: Simple partial seizures
     Dosage: 25 MILLIGRAM
     Route: 048
  8. XCOPRI [Suspect]
     Active Substance: CENOBAMATE
     Indication: Simple partial seizures
     Dosage: 150 MILLIGRAM
     Route: 048
  9. XCOPRI [Suspect]
     Active Substance: CENOBAMATE
     Indication: Simple partial seizures
     Dosage: 50 MILLIGRAM
     Route: 048
  10. XCOPRI [Suspect]
     Active Substance: CENOBAMATE
     Indication: Simple partial seizures
     Dosage: 150 MILLIGRAM
     Route: 048
  11. XCOPRI [Suspect]
     Active Substance: CENOBAMATE
     Indication: Simple partial seizures
     Dosage: 12.5 MILLIGRAM
     Route: 048
  12. XCOPRI [Suspect]
     Active Substance: CENOBAMATE
     Indication: Simple partial seizures
     Dosage: 100 MILLIGRAM
     Route: 048
  13. CLOBAZAM [Suspect]
     Active Substance: CLOBAZAM
     Indication: Product used for unknown indication
     Route: 065
  14. ACETAMINOPHEN [Concomitant]
     Active Substance: ACETAMINOPHEN
     Indication: Pain
  15. LEVOTHYROXINE [Concomitant]
     Active Substance: LEVOTHYROXINE
     Indication: Product used for unknown indication
  16. BRIVARACETAM [Concomitant]
     Active Substance: BRIVARACETAM
     Indication: Product used for unknown indication
     Dosage: 100 MILLIGRAM
     Route: 048

REACTIONS (10)
  - Wrong technique in product usage process [Not Recovered/Not Resolved]
  - Balance disorder [Unknown]
  - Seizure [Unknown]
  - Hypersomnia [Not Recovered/Not Resolved]
  - Fall [Unknown]
  - Overweight [Not Recovered/Not Resolved]
  - Condition aggravated [Unknown]
  - Vision blurred [Not Recovered/Not Resolved]
  - Visual impairment [Unknown]
  - Dizziness [Not Recovered/Not Resolved]
